FAERS Safety Report 7794011-6 (Version None)
Quarter: 2011Q4

REPORT INFORMATION
  Report Type: 
  Country: None (occurrence: None)
  Receive Date: 20111004
  Receipt Date: 20110928
  Transmission Date: 20120403
  Serious: No
  Sender: FDA-Public Use
  Company Number: US-BIOGENIDEC-2011BI037410

PATIENT
  Age: 18 Year
  Sex: Female

DRUGS (4)
  1. REBIF [Concomitant]
     Indication: MULTIPLE SCLEROSIS
     Dates: start: 20040101
  2. LUNESTA [Concomitant]
     Indication: SLEEP DISORDER
     Dates: start: 20090101
  3. TYSABRI [Suspect]
     Indication: MULTIPLE SCLEROSIS
     Route: 042
     Dates: start: 20081204, end: 20110401
  4. TYSABRI [Suspect]
     Route: 042
     Dates: start: 20110401

REACTIONS (8)
  - MUSCLE SPASMS [None]
  - ANXIETY [None]
  - VITAMIN D DECREASED [None]
  - BACK PAIN [None]
  - HEADACHE [None]
  - BLOOD IRON DECREASED [None]
  - FATIGUE [None]
  - PAIN IN EXTREMITY [None]
